FAERS Safety Report 19603129 (Version 1)
Quarter: 2021Q3

REPORT INFORMATION
  Report Type: Spontaneous
  Country: HU (occurrence: HU)
  Receive Date: 20210723
  Receipt Date: 20210723
  Transmission Date: 20211014
  Serious: Yes (Disabling, Other)
  Sender: FDA-Public Use
  Company Number: NVSC2021HU160238

PATIENT
  Age: 65 Year
  Sex: Female
  Weight: 50 kg

DRUGS (7)
  1. BETAREVIN [Concomitant]
     Active Substance: BETAHISTINE
     Indication: PRODUCT USED FOR UNKNOWN INDICATION
     Dosage: UNK
     Route: 065
  2. DETRALEX [Concomitant]
     Active Substance: DIOSMIN\HESPERIDIN
     Indication: PRODUCT USED FOR UNKNOWN INDICATION
     Dosage: UNK
     Route: 065
  3. AMLODIPIN SANDOZ [AMLODIPINE MESILATE] [Suspect]
     Active Substance: AMLODIPINE MESYLATE
     Indication: LABILE HYPERTENSION
     Dosage: 1 DF= A HALF TABLET, IN THE EVENING (STRENGTH: 5 MG), STARTED ABOUT 3 YEARS AGO
     Route: 065
  4. PANANGIN FORTE [Concomitant]
     Indication: ATRIAL FIBRILLATION
     Dosage: UNK
     Route: 065
  5. FRONTIN [Suspect]
     Active Substance: ALPRAZOLAM
     Indication: LABILE HYPERTENSION
     Dosage: HALF OF A 0.25 MG TABLET IN THE MORNING, HALF A TABLET AT NOON AND A WHOLE TABLET IN THE EVENING
     Route: 065
     Dates: start: 2015
  6. ELIQUIS [Concomitant]
     Active Substance: APIXABAN
     Indication: PRODUCT USED FOR UNKNOWN INDICATION
     Dosage: UNK
     Route: 065
  7. CONCOR [Concomitant]
     Active Substance: BISOPROLOL FUMARATE
     Indication: ATRIAL FIBRILLATION
     Route: 065

REACTIONS (29)
  - Vision blurred [Not Recovered/Not Resolved]
  - Sedation [Unknown]
  - Coordination abnormal [Not Recovered/Not Resolved]
  - Gait disturbance [Unknown]
  - Photosensitivity reaction [Unknown]
  - Insomnia [Unknown]
  - Muscular weakness [Unknown]
  - Depression [Unknown]
  - Nausea [Unknown]
  - Palpitations [Not Recovered/Not Resolved]
  - Joint swelling [Not Recovered/Not Resolved]
  - Decreased appetite [Not Recovered/Not Resolved]
  - Memory impairment [Unknown]
  - Anxiety [Unknown]
  - Intraocular pressure increased [Unknown]
  - Dizziness [Not Recovered/Not Resolved]
  - Urinary incontinence [Unknown]
  - Hepatic function abnormal [Unknown]
  - Arrhythmia [Not Recovered/Not Resolved]
  - Panic disorder [Unknown]
  - Incorrect product administration duration [Unknown]
  - Dysuria [Unknown]
  - Drug dependence [Unknown]
  - Drug effective for unapproved indication [Unknown]
  - Somnolence [Unknown]
  - Balance disorder [Unknown]
  - Constipation [Not Recovered/Not Resolved]
  - Peripheral swelling [Unknown]
  - Weight decreased [Not Recovered/Not Resolved]

NARRATIVE: CASE EVENT DATE: 2020
